FAERS Safety Report 8734937 (Version 2)
Quarter: 2012Q4

REPORT INFORMATION
  Report Type: 
  Country: US (occurrence: US)
  Receive Date: 20120821
  Receipt Date: 20120828
  Transmission Date: 20130627
  Serious: Yes (Hospitalization)
  Sender: FDA-Public Use
  Company Number: US-ACTELION-A-NJ2012-70292

PATIENT
  Age: 58 Year
  Sex: Male

DRUGS (1)
  1. VENTAVIS [Suspect]
     Indication: PULMONARY ARTERIAL HYPERTENSION
     Dosage: 5 ?g, 5xdaily
     Route: 055
     Dates: start: 201207

REACTIONS (5)
  - Pulmonary arterial hypertension [Recovering/Resolving]
  - Cardiac failure congestive [Recovering/Resolving]
  - Weight increased [Recovering/Resolving]
  - Dyspnoea [Recovering/Resolving]
  - Hyponatraemia [Recovering/Resolving]
